FAERS Safety Report 19753775 (Version 1)
Quarter: 2021Q3

REPORT INFORMATION
  Report Type: Spontaneous
  Country: JP (occurrence: JP)
  Receive Date: 20210827
  Receipt Date: 20210827
  Transmission Date: 20211014
  Serious: Yes (Hospitalization, Other)
  Sender: FDA-Public Use
  Company Number: JP-PFIZER INC-202101010754

PATIENT
  Age: 68 Year
  Sex: Female

DRUGS (2)
  1. ACTARIT [Concomitant]
     Active Substance: ACTARIT
     Indication: RHEUMATOID ARTHRITIS
     Dosage: 100 MG, DAILY
  2. METHOTREXATE. [Suspect]
     Active Substance: METHOTREXATE
     Indication: RHEUMATOID ARTHRITIS
     Dosage: 6 MG, WEEKLY

REACTIONS (3)
  - Pancytopenia [Recovered/Resolved]
  - Pneumocystis jirovecii pneumonia [Recovering/Resolving]
  - Condition aggravated [Recovering/Resolving]
